FAERS Safety Report 4588740-5 (Version None)
Quarter: 2005Q1

REPORT INFORMATION
  Report Type: 
  Country: None (occurrence: None)
  Receive Date: 20050216
  Receipt Date: 20050127
  Transmission Date: 20050727
  Serious: No
  Sender: FDA-Public Use
  Company Number: US_0406103668

PATIENT
  Age: 49 Year
  Sex: Female
  Weight: 87 kg

DRUGS (26)
  1. ZYPREXA [Suspect]
     Dosage: 20 MG DAY
     Dates: start: 19990101, end: 20040615
  2. GLUCOTROL [Concomitant]
  3. PENTA-TRIAMTERENE HCTZ [Concomitant]
  4. NEXIUM [Concomitant]
  5. PREMARIN [Concomitant]
  6. SYNTHROID [Concomitant]
  7. TRICOR [Concomitant]
  8. RISPERIDONE [Concomitant]
  9. ARIPIPRAZOLE [Concomitant]
  10. HALDOL (HALOPERIDOL DECANOATE) [Concomitant]
  11. LITHIUM [Concomitant]
  12. LORAZEPAM [Concomitant]
  13. RESTORIL [Concomitant]
  14. AMBIEN [Concomitant]
  15. HYDROCODONE W/APAP [Concomitant]
  16. PENICILLIN-VK [Concomitant]
  17. RELAFEN [Concomitant]
  18. TRAZADONE (TRAZODONE) [Concomitant]
  19. IBUPROFEN [Concomitant]
  20. INFLUENZA VACCINE [Concomitant]
  21. REMERON (MIRTAZAPINE ORIFARM) [Concomitant]
  22. BEXTRA [Concomitant]
  23. NAPROSYN (NAPROXEN MEPHA) [Concomitant]
  24. QUININE SULFATE [Concomitant]
  25. MAXZIDE [Concomitant]
  26. CLONIDINE [Concomitant]

REACTIONS (29)
  - ANXIETY [None]
  - ASTHENIA [None]
  - BLOOD GLUCOSE FLUCTUATION [None]
  - BLOOD POTASSIUM DECREASED [None]
  - BLOOD PRESSURE INCREASED [None]
  - BLOOD SODIUM DECREASED [None]
  - CONDITION AGGRAVATED [None]
  - CONSTIPATION [None]
  - DEHYDRATION [None]
  - DEPRESSION [None]
  - DIABETES MELLITUS [None]
  - FLATULENCE [None]
  - HAEMORRHOIDS [None]
  - HEADACHE [None]
  - HYPERTRIGLYCERIDAEMIA [None]
  - ILL-DEFINED DISORDER [None]
  - IRRITABILITY [None]
  - LIBIDO INCREASED [None]
  - LOGORRHOEA [None]
  - MANIA [None]
  - MUSCLE SPASMS [None]
  - PAIN IN EXTREMITY [None]
  - PRESSURE OF SPEECH [None]
  - RECTAL HAEMORRHAGE [None]
  - SOMNOLENCE [None]
  - THINKING ABNORMAL [None]
  - TOOTH EXTRACTION [None]
  - VISION BLURRED [None]
  - WEIGHT DECREASED [None]
